FAERS Safety Report 19187966 (Version 2)
Quarter: 2021Q3

REPORT INFORMATION
  Report Type: Spontaneous
  Country: US (occurrence: US)
  Receive Date: 20210427
  Receipt Date: 20210722
  Transmission Date: 20211014
  Serious: Yes (Hospitalization)
  Sender: FDA-Public Use
  Company Number: US-KARYOPHARM-2021KPT000366

PATIENT

DRUGS (3)
  1. XPOVIO [Suspect]
     Active Substance: SELINEXOR
     Dosage: 80 MG, WEEKLY
     Route: 048
     Dates: start: 20210226
  2. XPOVIO [Suspect]
     Active Substance: SELINEXOR
     Dosage: 40 MG, WEEKLY
     Route: 048
  3. XPOVIO [Suspect]
     Active Substance: SELINEXOR
     Indication: PLASMA CELL MYELOMA
     Dosage: 20 MG, WEEKLY
     Route: 048
     Dates: start: 20210212, end: 20210219

REACTIONS (4)
  - Hypotension [Unknown]
  - Accidental underdose [Unknown]
  - COVID-19 [Unknown]
  - Spondylitis [Not Recovered/Not Resolved]

NARRATIVE: CASE EVENT DATE: 20210212
